FAERS Safety Report 10977819 (Version 2)
Quarter: 2015Q2

REPORT INFORMATION
  Report Type: Spontaneous
  Country: TW (occurrence: None)
  Receive Date: 20150330
  Receipt Date: 20150414
  Transmission Date: 20150821
  Serious: Yes (Hospitalization)
  Sender: FDA-Public Use
  Company Number: FK201501505

PATIENT
  Age: 65 Year
  Sex: Male

DRUGS (3)
  1. LIPIODOL [Suspect]
     Active Substance: ETHIODIZED OIL
     Indication: HEPATOCELLULAR CARCINOMA
     Dates: start: 20120622
  2. CEFAZOLIN (MANUFACTURER UNKNOWN) (CEFAZOLIN) (CEFAZOLIN) [Suspect]
     Active Substance: CEFAZOLIN
     Indication: HEPATOCELLULAR CARCINOMA
     Dates: start: 20120622
  3. DOXORUBICIN (MANUFACTURER UNKNOWN) (DOXORUBICIN HYDROCHLORIDE) (DOXORUBICIN HYDROCHLORIDE) [Suspect]
     Active Substance: DOXORUBICIN
     Indication: HEPATOCELLULAR CARCINOMA
     Dates: start: 20120622

REACTIONS (7)
  - Blood potassium increased [None]
  - Tumour lysis syndrome [None]
  - Hypocalcaemia [None]
  - Acute kidney injury [None]
  - Haemodialysis [None]
  - Post procedural complication [None]
  - Surgical procedure repeated [None]
